FAERS Safety Report 9381712 (Version 2)
Quarter: 2013Q3

REPORT INFORMATION
  Report Type: Spontaneous
  Country: US (occurrence: US)
  Receive Date: 20130703
  Receipt Date: 20130909
  Transmission Date: 20140515
  Serious: Yes (Hospitalization)
  Sender: FDA-Public Use
  Company Number: US-NOVOPROD-381796

PATIENT
  Age: 46 Year
  Sex: Female

DRUGS (1)
  1. NORDITROPIN FLEXPRO 3.3 MG/ML [Suspect]
     Indication: PRODUCT USED FOR UNKNOWN INDICATION
     Dosage: 1 MG, QD
     Route: 058

REACTIONS (1)
  - Dizziness [Unknown]
